FAERS Safety Report 11951692 (Version 2)
Quarter: 2016Q1

REPORT INFORMATION
  Report Type: Spontaneous
  Country: FI (occurrence: FI)
  Receive Date: 20160126
  Receipt Date: 20160210
  Transmission Date: 20160526
  Serious: Yes (Hospitalization, Disabling, Other)
  Sender: FDA-Public Use
  Company Number: FI-PFIZER INC-2016031655

PATIENT
  Age: 12 Year
  Sex: Male
  Weight: 35 kg

DRUGS (2)
  1. PRONAXEN [Concomitant]
     Active Substance: NAPROXEN
     Indication: JUVENILE IDIOPATHIC ARTHRITIS
     Dosage: 250 MG, 2X/DAY
     Dates: start: 20141120
  2. SALAZOPYRIN EN [Suspect]
     Active Substance: SULFASALAZINE
     Indication: JUVENILE IDIOPATHIC ARTHRITIS
     Dosage: 750 MG, 2X/DAY
     Route: 048
     Dates: start: 20150107, end: 20150204

REACTIONS (3)
  - Epstein-Barr virus infection [Recovered/Resolved]
  - Cytomegalovirus infection [Unknown]
  - Wrong technique in product usage process [Unknown]

NARRATIVE: CASE EVENT DATE: 20150204
